FAERS Safety Report 7674945-3 (Version None)
Quarter: 2011Q3

REPORT INFORMATION
  Report Type: 
  Country: None (occurrence: None)
  Receive Date: 20110810
  Receipt Date: 20110802
  Transmission Date: 20111222
  Serious: Yes (Hospitalization)
  Sender: FDA-Public Use
  Company Number: PHHY2011GB35225

PATIENT
  Age: 21 Year
  Sex: Male

DRUGS (6)
  1. RISPERIDONE [Suspect]
     Dosage: 1 MG, BID
  2. AMISULPRIDE [Suspect]
     Dosage: 200 MG, NOCTE
  3. QUETIAPINE [Suspect]
  4. HALOPERIDOL [Suspect]
  5. CLOZAPINE [Suspect]
     Dosage: 500 MG, DAILY
  6. AMISULPRIDE [Suspect]
     Dosage: 100 MG, UNK

REACTIONS (14)
  - PARANOIA [None]
  - POSTURING [None]
  - HALLUCINATION, AUDITORY [None]
  - NOCTURIA [None]
  - POLLAKIURIA [None]
  - POSTURE ABNORMAL [None]
  - ABNORMAL BEHAVIOUR [None]
  - IMPAIRED SELF-CARE [None]
  - SPEECH DISORDER [None]
  - DRUG INEFFECTIVE [None]
  - PSYCHOTIC DISORDER [None]
  - WAXY FLEXIBILITY [None]
  - ILLUSION [None]
  - WEIGHT DECREASED [None]
